FAERS Safety Report 17048632 (Version 1)
Quarter: 2019Q4

REPORT INFORMATION
  Report Type: Spontaneous
  Country: US (occurrence: US)
  Receive Date: 20191118
  Receipt Date: 20191118
  Transmission Date: 20200122
  Serious: No
  Sender: FDA-Public Use
  Company Number: None

PATIENT
  Age: 76 Year
  Sex: Male
  Weight: 100.3 kg

DRUGS (1)
  1. DOCETAXEL. [Suspect]
     Active Substance: DOCETAXEL
     Dosage: ?          OTHER FREQUENCY:EVERY 21 DAYS;?
     Route: 041

REACTIONS (2)
  - Infusion related reaction [None]
  - Ear pruritus [None]

NARRATIVE: CASE EVENT DATE: 20191104
